FAERS Safety Report 20740206 (Version 1)
Quarter: 2022Q2

REPORT INFORMATION
  Report Type: Spontaneous
  Country: US (occurrence: US)
  Receive Date: 20220422
  Receipt Date: 20220422
  Transmission Date: 20220721
  Serious: No
  Sender: FDA-Public Use
  Company Number: US-ARBOR PHARMACEUTICALS, LLC-US-2021ARB000381

PATIENT
  Sex: Male

DRUGS (3)
  1. EDARBI [Suspect]
     Active Substance: AZILSARTAN KAMEDOXOMIL
     Indication: Blood pressure abnormal
     Dosage: 40 MG, EVERY NIGHT BEFORE BEDTIME
     Route: 065
     Dates: start: 202012, end: 20210331
  2. EDARBI [Suspect]
     Active Substance: AZILSARTAN KAMEDOXOMIL
     Dosage: SPLITTING EDARBI 40 MG DOSE IN HALF
  3. SILODOSIN [Suspect]
     Active Substance: SILODOSIN
     Indication: Prostatic disorder
     Dosage: 4 MG, AFTER LUNCH ON SUN AND WED

REACTIONS (9)
  - Myalgia [Recovering/Resolving]
  - Blood pressure increased [Not Recovered/Not Resolved]
  - Somnolence [Recovering/Resolving]
  - Headache [Recovered/Resolved]
  - Adverse event [Recovered/Resolved]
  - Drug ineffective [Recovered/Resolved]
  - Fatigue [Recovering/Resolving]
  - Wrong technique in product usage process [Unknown]
  - Product storage error [Unknown]

NARRATIVE: CASE EVENT DATE: 20210101
